FAERS Safety Report 7611968-4 (Version None)
Quarter: 2011Q3

REPORT INFORMATION
  Report Type: 
  Country: None (occurrence: None)
  Receive Date: 20110715
  Receipt Date: 20110714
  Transmission Date: 20111222
  Serious: Yes (Death)
  Sender: FDA-Public Use
  Company Number: US-B.I. PHARMACEUTICALS,INC./RIDGEFIELD-2011-BP-15383BP

PATIENT
  Age: 69 Year
  Sex: Female
  Weight: 79.83 kg

DRUGS (6)
  1. ATENOLOL [Concomitant]
  2. SYNTHROID [Concomitant]
  3. LORAZEPAM [Concomitant]
  4. PRADAXA [Suspect]
     Indication: ATRIAL FIBRILLATION
     Dosage: 300 MG
     Route: 048
     Dates: start: 20110607
  5. CRESTOR [Concomitant]
     Indication: HYPERCHOLESTEROLAEMIA
  6. NORVASC [Concomitant]

REACTIONS (1)
  - VENTRICULAR TACHYCARDIA [None]
